FAERS Safety Report 12177998 (Version 1)
Quarter: 2016Q1

REPORT INFORMATION
  Report Type: Other
  Country: SE (occurrence: SE)
  Receive Date: 20160315
  Receipt Date: 20160315
  Transmission Date: 20160526
  Serious: No
  Sender: FDA-Public Use
  Company Number: SE-LUPIN PHARMACEUTICALS INC.-2016-00606

PATIENT
  Age: 31 Year
  Sex: Male

DRUGS (4)
  1. VENLAFAXINE [Suspect]
     Active Substance: VENLAFAXINE HYDROCHLORIDE
     Indication: DEPRESSION
     Dosage: 150 MG
     Route: 065
  2. SERTRALINE [Suspect]
     Active Substance: SERTRALINE HYDROCHLORIDE
     Indication: ANXIETY
     Dosage: 50 MG
     Route: 065
  3. SERTRALINE [Suspect]
     Active Substance: SERTRALINE HYDROCHLORIDE
     Indication: DEPRESSION
  4. VENLAFAXINE [Suspect]
     Active Substance: VENLAFAXINE HYDROCHLORIDE
     Indication: ANXIETY
     Dosage: 75 MG
     Route: 065

REACTIONS (4)
  - Gait disturbance [Recovered/Resolved]
  - Dysarthria [Recovered/Resolved]
  - Dystonia [Recovered/Resolved]
  - Blepharospasm [Recovered/Resolved]
